FAERS Safety Report 7210307-0 (Version None)
Quarter: 2011Q1

REPORT INFORMATION
  Report Type: 
  Country: None (occurrence: None)
  Receive Date: 20110103
  Receipt Date: 20110103
  Transmission Date: 20110831
  Serious: Yes (Hospitalization)
  Sender: FDA-Public Use
  Company Number: None

PATIENT
  Age: 62 Year
  Sex: Male
  Weight: 97 kg

DRUGS (1)
  1. EPIRUBICIN [Suspect]
     Dates: start: 20101109

REACTIONS (6)
  - TREMOR [None]
  - ANGINA PECTORIS [None]
  - CHILLS [None]
  - DIZZINESS [None]
  - CHEST DISCOMFORT [None]
  - NAUSEA [None]
